FAERS Safety Report 14154618 (Version 1)
Quarter: 2017Q4

REPORT INFORMATION
  Report Type: Spontaneous
  Country: US (occurrence: US)
  Receive Date: 20171102
  Receipt Date: 20171102
  Transmission Date: 20180321
  Serious: No
  Sender: FDA-Public Use
  Company Number: US-ACTELION-A-NJ2017-161820

PATIENT
  Age: 52 Year
  Sex: Female
  Weight: 79.37 kg

DRUGS (4)
  1. TRACLEER [Suspect]
     Active Substance: BOSENTAN
     Indication: PULMONARY HYPERTENSION
     Dosage: 125 MG, BID
     Route: 048
  2. ADCIRCA [Concomitant]
     Active Substance: TADALAFIL
  3. WARFARIN [Concomitant]
     Active Substance: WARFARIN
  4. AUGMENTIN [Suspect]
     Active Substance: AMOXICILLIN\CLAVULANATE POTASSIUM
     Indication: PRODUCT USED FOR UNKNOWN INDICATION
     Dosage: UNK
     Route: 065
     Dates: start: 20171010

REACTIONS (7)
  - Eye irritation [Recovered/Resolved]
  - Ear pruritus [Recovered/Resolved]
  - Burning sensation [Recovered/Resolved]
  - Lower respiratory tract infection [Unknown]
  - Eye pruritus [Recovered/Resolved]
  - Nasopharyngitis [Unknown]
  - Drug hypersensitivity [Recovered/Resolved]

NARRATIVE: CASE EVENT DATE: 20171013
